FAERS Safety Report 8268313-3 (Version None)
Quarter: 2012Q2

REPORT INFORMATION
  Report Type: 
  Country: None (occurrence: None)
  Receive Date: 20120409
  Receipt Date: 20120328
  Transmission Date: 20120825
  Serious: Yes (Other)
  Sender: FDA-Public Use
  Company Number: US-ROCHE-792948

PATIENT
  Sex: Male
  Weight: 86.26 kg

DRUGS (1)
  1. ACCUTANE [Suspect]
     Indication: ACNE
     Route: 065
     Dates: start: 19920101, end: 19921231

REACTIONS (6)
  - COLONIC POLYP [None]
  - COLITIS ULCERATIVE [None]
  - STRESS [None]
  - DEPRESSION [None]
  - ANAEMIA [None]
  - INFLAMMATORY BOWEL DISEASE [None]
